FAERS Safety Report 4637349-3 (Version None)
Quarter: 2005Q2

REPORT INFORMATION
  Report Type: 
  Country: None (occurrence: None)
  Receive Date: 20050328
  Receipt Date: 20041202
  Transmission Date: 20051028
  Serious: No
  Sender: FDA-Public Use
  Company Number: USA041183109

PATIENT
  Age: 6 Year
  Sex: Male
  Weight: 33 kg

DRUGS (1)
  1. STRATTERA [Suspect]
     Indication: ATTENTION DEFICIT/HYPERACTIVITY DISORDER
     Dosage: 50 MG IN THE EVENING
     Dates: start: 20041001, end: 20041201

REACTIONS (9)
  - ABNORMAL BEHAVIOUR [None]
  - AGGRESSION [None]
  - ANGER [None]
  - ATTENTION DEFICIT/HYPERACTIVITY DISORDER [None]
  - BELLIGERENCE [None]
  - DRUG INEFFECTIVE [None]
  - HEADACHE [None]
  - PERSONALITY DISORDER [None]
  - PRESCRIBED OVERDOSE [None]
